FAERS Safety Report 24447464 (Version 1)
Quarter: 2024Q4

REPORT INFORMATION
  Report Type: Spontaneous
  Country: US (occurrence: US)
  Receive Date: 20241016
  Receipt Date: 20241016
  Transmission Date: 20250115
  Serious: No
  Sender: SANOFI AVENTIS
  Company Number: US-SA-2024SA295482

PATIENT
  Sex: Female
  Weight: 72.27 kg

DRUGS (18)
  1. DUPIXENT [Suspect]
     Active Substance: DUPILUMAB
     Indication: Asthma
     Dosage: 300 MG, QOW
  2. ALPRAZOLAM [Concomitant]
     Active Substance: ALPRAZOLAM
  3. SOMA [Concomitant]
     Active Substance: CARISOPRODOL
  4. ALBUTEROL SULFATE [Concomitant]
     Active Substance: ALBUTEROL SULFATE
  5. DULERA [Concomitant]
     Active Substance: FORMOTEROL FUMARATE DIHYDRATE\MOMETASONE FUROATE
  6. ZYRTEC [Concomitant]
     Active Substance: CETIRIZINE HYDROCHLORIDE
  7. ATORVASTATIN CALCIUM [Concomitant]
     Active Substance: ATORVASTATIN CALCIUM
  8. CYTOMEL [Concomitant]
     Active Substance: LIOTHYRONINE SODIUM
  9. PROCHLORPERAZINE MALEATE [Concomitant]
     Active Substance: PROCHLORPERAZINE MALEATE
  10. PREDNISONE [Concomitant]
     Active Substance: PREDNISONE
  11. MIRTAZAPINE [Concomitant]
     Active Substance: MIRTAZAPINE
  12. LEVO T [Concomitant]
  13. FLUCONAZOLE [Concomitant]
     Active Substance: FLUCONAZOLE
  14. MONTELUKAST SODIUM [Concomitant]
     Active Substance: MONTELUKAST SODIUM
  15. OMEPRAZOLE [Concomitant]
     Active Substance: OMEPRAZOLE
  16. IBUPROFEN [Concomitant]
     Active Substance: IBUPROFEN
  17. VIBERZI [Concomitant]
     Active Substance: ELUXADOLINE
  18. PIOGLITAZONE AND METFORMIN [Concomitant]
     Active Substance: METFORMIN HYDROCHLORIDE\PIOGLITAZONE HYDROCHLORIDE
     Dosage: UNK

REACTIONS (1)
  - Illness [Unknown]
